FAERS Safety Report 4628199-2 (Version None)
Quarter: 2005Q2

REPORT INFORMATION
  Report Type: 
  Country: None (occurrence: None)
  Receive Date: 20050401
  Receipt Date: 20050322
  Transmission Date: 20051028
  Serious: Yes (Other)
  Sender: FDA-Public Use
  Company Number: USA-2005-0019038

PATIENT
  Age: 51 Year
  Sex: Male

DRUGS (2)
  1. OXYCONTIN [Suspect]
     Indication: PAIN
     Dosage: 20 MG
  2. HYDROCODONE BITARTRATE [Concomitant]

REACTIONS (13)
  - COLD SWEAT [None]
  - DRUG INEFFECTIVE [None]
  - FEELING ABNORMAL [None]
  - HEART RATE INCREASED [None]
  - HYPERHIDROSIS [None]
  - INSOMNIA [None]
  - MALAISE [None]
  - PAIN [None]
  - PAIN IN EXTREMITY [None]
  - PHARMACEUTICAL PRODUCT COMPLAINT [None]
  - RENAL PAIN [None]
  - SEDATION [None]
  - VISION BLURRED [None]
